FAERS Safety Report 15601279 (Version 2)
Quarter: 2018Q4

REPORT INFORMATION
  Report Type: Spontaneous
  Country: KR (occurrence: KR)
  Receive Date: 20181109
  Receipt Date: 20181113
  Transmission Date: 20190205
  Serious: Yes (Other)
  Sender: FDA-Public Use
  Company Number: KR-INCYTE CORPORATION-2018IN010729

PATIENT

DRUGS (14)
  1. JAKAVI [Suspect]
     Active Substance: RUXOLITINIB
     Dosage: 15 MG, QD
     Route: 048
     Dates: start: 20180821, end: 20180903
  2. LIPIDIL SUPRA [Concomitant]
     Indication: ARTERIOSCLEROSIS
     Dosage: 1 TSP, QHS
     Route: 065
  3. NEURONTIN [Concomitant]
     Active Substance: GABAPENTIN
     Indication: EPILEPSY
     Dosage: 2 TSP, BID
     Route: 065
  4. DUPHALAC [Concomitant]
     Active Substance: LACTULOSE
     Indication: PRODUCT USED FOR UNKNOWN INDICATION
     Dosage: 30 ML, QD
     Route: 048
  5. JAKAVI [Suspect]
     Active Substance: RUXOLITINIB
     Indication: MYELOPROLIFERATIVE NEOPLASM
     Dosage: 20 MG, QD
     Route: 048
     Dates: start: 20180716, end: 20180820
  6. KANARB [Concomitant]
     Indication: BLOOD PRESSURE ABNORMAL
     Dosage: 1 TSP, QD
     Route: 065
  7. ALBIS [Concomitant]
     Active Substance: BISMUTH SUBCITRATE\RANITIDINE HYDROCHLORIDE\SUCRALFATE
     Indication: PRODUCT USED FOR UNKNOWN INDICATION
     Dosage: 2 TSP, BID
     Route: 065
  8. JAKAVI [Suspect]
     Active Substance: RUXOLITINIB
     Dosage: 5 MG, QD
     Route: 048
     Dates: start: 20180904, end: 20180920
  9. KALIMATE [Concomitant]
     Active Substance: CALCIUM POLYSTYRENE SULFONATE
     Indication: PRODUCT USED FOR UNKNOWN INDICATION
     Dosage: 2 (PKG)
     Route: 065
  10. DILATREND [Concomitant]
     Active Substance: CARVEDILOL
     Indication: BLOOD PRESSURE ABNORMAL
     Dosage: 1 TSP, QD
     Route: 065
  11. DULCOLAX-S [Concomitant]
     Indication: PRODUCT USED FOR UNKNOWN INDICATION
     Dosage: 1 TSP, UNK
     Route: 065
  12. ANPLAG [Concomitant]
     Active Substance: SARPOGRELATE
     Indication: ANTIPLATELET THERAPY
     Dosage: 2 TSP, BID
     Route: 065
  13. ADALAT [Concomitant]
     Active Substance: NIFEDIPINE
     Indication: VASODILATATION
     Dosage: 1 TSP, QD
     Route: 065
  14. FURIX [Concomitant]
     Active Substance: FUROSEMIDE
     Indication: PRODUCT USED FOR UNKNOWN INDICATION
     Dosage: 2 OT, BID
     Route: 065

REACTIONS (3)
  - Nausea [Recovering/Resolving]
  - Thrombocytopenia [Not Recovered/Not Resolved]
  - Tongue discolouration [Recovered/Resolved]

NARRATIVE: CASE EVENT DATE: 20180731
